FAERS Safety Report 7751401-5 (Version None)
Quarter: 2011Q3

REPORT INFORMATION
  Report Type: 
  Country: None (occurrence: None)
  Receive Date: 20110914
  Receipt Date: 20110912
  Transmission Date: 20111222
  Serious: Yes (Other)
  Sender: FDA-Public Use
  Company Number: CA-PFIZER INC-2011215722

PATIENT
  Age: 80 Year
  Sex: Male

DRUGS (1)
  1. VARENICLINE TARTRATE [Suspect]
     Dosage: 1 MG, 2X/DAY
     Dates: start: 20110101

REACTIONS (4)
  - UPPER LIMB FRACTURE [None]
  - FALL [None]
  - ABNORMAL DREAMS [None]
  - INSOMNIA [None]
